FAERS Safety Report 19953271 (Version 1)
Quarter: 2021Q4

REPORT INFORMATION
  Report Type: Spontaneous
  Country: IT (occurrence: IT)
  Receive Date: 20211013
  Receipt Date: 20211013
  Transmission Date: 20220303
  Serious: Yes (Other)
  Sender: FDA-Public Use
  Company Number: IT-TAKEDA-2021TUS062560

PATIENT
  Age: 34 Year
  Sex: Female

DRUGS (3)
  1. MESALAMINE [Suspect]
     Active Substance: MESALAMINE
     Indication: Colitis ulcerative
     Dosage: 3.2 GRAM, QD
     Route: 048
  2. AZATHIOPRINE [Suspect]
     Active Substance: AZATHIOPRINE
     Indication: Colitis ulcerative
     Dosage: 2 MILLIGRAM/KILOGRAM
     Route: 048
  3. INFLIXIMAB [Concomitant]
     Active Substance: INFLIXIMAB

REACTIONS (2)
  - Diarrhoea haemorrhagic [Unknown]
  - Adverse reaction [Unknown]
